FAERS Safety Report 14371911 (Version 1)
Quarter: 2018Q1

REPORT INFORMATION
  Report Type: Spontaneous
  Country: US (occurrence: US)
  Receive Date: 20180110
  Receipt Date: 20180110
  Transmission Date: 20180509
  Serious: Yes (Hospitalization, Other)
  Sender: FDA-Public Use
  Company Number: US-WEST-WARD PHARMACEUTICALS CORP.-US-H14001-18-00106

PATIENT
  Age: 53 Year
  Sex: Male
  Weight: 78 kg

DRUGS (5)
  1. HYDROMORPHONE [Concomitant]
     Active Substance: HYDROMORPHONE
     Indication: INCISION SITE PAIN
     Dosage: ()
     Route: 065
  2. FENTANYL. [Suspect]
     Active Substance: FENTANYL
     Indication: INCISION SITE PAIN
     Dosage: ()
     Route: 065
  3. 0.25% BUPIVACAINE/EPINEPHRINE [Concomitant]
     Indication: INCISION SITE PAIN
     Dosage: ()
     Route: 065
  4. BUPIVACAINE. [Concomitant]
     Active Substance: BUPIVACAINE
     Indication: INCISION SITE PAIN
     Dosage: ()
     Route: 065
  5. DEXAMETHASONE. [Concomitant]
     Active Substance: DEXAMETHASONE
     Indication: INCISION SITE PAIN
     Dosage: ()
     Route: 065

REACTIONS (2)
  - Bradypnoea [Recovered/Resolved]
  - Somnolence [Recovered/Resolved]
